FAERS Safety Report 10131288 (Version 1)
Quarter: 2014Q2

REPORT INFORMATION
  Report Type: Spontaneous
  Country: US (occurrence: US)
  Receive Date: 20140428
  Receipt Date: 20140428
  Transmission Date: 20141212
  Serious: No
  Sender: FDA-Public Use
  Company Number: US-GLAXOSMITHKLINE-A1037064A

PATIENT
  Sex: Female

DRUGS (2)
  1. ZOFRAN [Suspect]
     Indication: NAUSEA
  2. CRIZOTINIB [Concomitant]
     Indication: LUNG NEOPLASM MALIGNANT
     Dosage: 250MG TWICE PER DAY
     Dates: start: 201203

REACTIONS (1)
  - Drug ineffective [Unknown]
